FAERS Safety Report 25731863 (Version 1)
Quarter: 2025Q3

REPORT INFORMATION
  Report Type: Spontaneous
  Country: US (occurrence: US)
  Receive Date: 20250827
  Receipt Date: 20250827
  Transmission Date: 20251020
  Serious: Yes (Hospitalization)
  Sender: SK LIFE SCIENCE
  Company Number: US-SK LIFE SCIENCE, INC.-SKPVG-2025-001757

PATIENT

DRUGS (2)
  1. XCOPRI [Suspect]
     Active Substance: CENOBAMATE
     Indication: Epilepsy
     Route: 065
  2. XCOPRI [Suspect]
     Active Substance: CENOBAMATE
     Route: 065

REACTIONS (2)
  - Hospitalisation [Unknown]
  - Product dose omission issue [Unknown]
